FAERS Safety Report 6045190-2 (Version None)
Quarter: 2009Q1

REPORT INFORMATION
  Report Type: 
  Country: None (occurrence: None)
  Receive Date: 20090116
  Receipt Date: 20090116
  Transmission Date: 20090719
  Serious: Yes (Hospitalization)
  Sender: FDA-Public Use
  Company Number: None

PATIENT
  Sex: Female
  Weight: 84.09 kg

DRUGS (9)
  1. DAYPRO [Suspect]
     Dosage: 600 MG TABLET MG BID ORAL
     Route: 048
     Dates: start: 20081008, end: 20090115
  2. ATENOLOL [Concomitant]
  3. DOXYCYCLINE HYCLATE [Concomitant]
  4. LEVOXYL [Concomitant]
  5. NEXIUM [Concomitant]
  6. NORVASC [Concomitant]
  7. PLAQUENIL (HYROXYCHLOROQUINE) [Concomitant]
  8. SIMAVASTATIN [Concomitant]
  9. TRICOR (FENOFIBRATE (TRICOR)) [Concomitant]

REACTIONS (1)
  - RECTAL HAEMORRHAGE [None]
